FAERS Safety Report 21382597 (Version 2)
Quarter: 2022Q4

REPORT INFORMATION
  Report Type: Other
  Country: US (occurrence: None)
  Receive Date: 20220927
  Receipt Date: 20221013
  Transmission Date: 20230113
  Serious: No
  Sender: FDA-Public Use
  Company Number: US-ROCHE-3185917

PATIENT
  Age: 45 Year
  Sex: Female

DRUGS (1)
  1. OCREVUS [Suspect]
     Active Substance: OCRELIZUMAB
     Indication: Relapsing multiple sclerosis
     Dosage: ONGOING YES, INFUSE 300MG DAYS 1 AND 15, INFUSE 600MG Q6 MONTHS THEREAFTER?DATE OF TREATMENT: 19/JAN
     Route: 042
     Dates: start: 20220202

REACTIONS (2)
  - COVID-19 [Not Recovered/Not Resolved]
  - Vertigo positional [Unknown]
